FAERS Safety Report 22111476 (Version 1)
Quarter: 2023Q1

REPORT INFORMATION
  Report Type: Spontaneous
  Country: US (occurrence: US)
  Receive Date: 20230317
  Receipt Date: 20230317
  Transmission Date: 20230418
  Serious: Yes (Other)
  Sender: FDA-Public Use
  Company Number: US-ABBVIE-4341345

PATIENT
  Sex: Female

DRUGS (1)
  1. LUPRON [Suspect]
     Active Substance: LEUPROLIDE ACETATE
     Indication: Product used for unknown indication
     Route: 065
     Dates: start: 202208, end: 202301

REACTIONS (6)
  - Relapsing-remitting multiple sclerosis [Unknown]
  - Urticaria [Unknown]
  - Memory impairment [Unknown]
  - Cognitive disorder [Unknown]
  - Drug intolerance [Unknown]
  - Rash [Unknown]
